FAERS Safety Report 24362840 (Version 3)
Quarter: 2024Q4

REPORT INFORMATION
  Report Type: Spontaneous
  Country: BR (occurrence: BR)
  Receive Date: 20240925
  Receipt Date: 20241018
  Transmission Date: 20250114
  Serious: Yes (Other)
  Sender: SANDOZ
  Company Number: BR-002147023-NVSC2023BR001702

PATIENT
  Age: 62 Year
  Sex: Female

DRUGS (4)
  1. ATORVASTATIN [Suspect]
     Active Substance: ATORVASTATIN
     Indication: Product used for unknown indication
     Dosage: 4 DOSAGE FORM, 4 TABLETS OF 20
     Route: 065
  2. COSENTYX [Suspect]
     Active Substance: SECUKINUMAB
     Dosage: 150 MG (2 PENS)
     Route: 065
  3. COSENTYX [Suspect]
     Active Substance: SECUKINUMAB
     Indication: Psoriasis
     Dosage: 300 MG, OTHER? TWO PENS, 300MG, PER MONTH
     Route: 065
  4. METHOTREXATE [Concomitant]
     Active Substance: METHOTREXATE
     Indication: Psoriasis
     Dosage: UNK
     Route: 065

REACTIONS (24)
  - Psoriatic arthropathy [Unknown]
  - Cataract [Unknown]
  - Arthralgia [Unknown]
  - Pain in extremity [Unknown]
  - Scab [Recovered/Resolved]
  - Injury [Unknown]
  - Skin atrophy [Unknown]
  - Wound [Unknown]
  - Crying [Unknown]
  - Pustule [Unknown]
  - Feeling abnormal [Unknown]
  - Pain [Unknown]
  - Haemorrhage [Unknown]
  - Psoriasis [Recovered/Resolved]
  - Fibromyalgia [Unknown]
  - Anaemia [Unknown]
  - Hypertension [Unknown]
  - Scab [Unknown]
  - Discomfort [Unknown]
  - Depressed mood [Unknown]
  - Depression [Unknown]
  - Pruritus [Unknown]
  - Visual impairment [Unknown]
  - Product availability issue [Unknown]

NARRATIVE: CASE EVENT DATE: 20221001
